FAERS Safety Report 7171438-7 (Version None)
Quarter: 2010Q4

REPORT INFORMATION
  Report Type: 
  Country: None (occurrence: None)
  Receive Date: 20101217
  Receipt Date: 20101210
  Transmission Date: 20110411
  Serious: Yes (Hospitalization)
  Sender: FDA-Public Use
  Company Number: BE-ABBOTT-10P-013-0640920-00

PATIENT
  Sex: Female
  Weight: 103 kg

DRUGS (9)
  1. KALETRA [Suspect]
     Indication: HIV INFECTION
     Dosage: 2 TABS BID, DAILY DOSE: 800/200MG
     Dates: start: 20071224
  2. KALETRA [Suspect]
     Indication: ANTIRETROVIRAL THERAPY
  3. EMTRIVA [Concomitant]
     Indication: HIV INFECTION
     Dates: start: 20071224
  4. EMTRIVA [Concomitant]
     Indication: ANTIRETROVIRAL THERAPY
  5. VIREAD [Concomitant]
     Indication: HIV INFECTION
     Dates: start: 20071224
  6. VIREAD [Concomitant]
     Indication: ANTIRETROVIRAL THERAPY
  7. AMLODIPINE [Concomitant]
     Indication: HYPERTENSION
     Dates: start: 20100412
  8. AMLODIPINE [Concomitant]
     Indication: PROPHYLAXIS
  9. EMCONCOR [Concomitant]
     Indication: PRODUCT USED FOR UNKNOWN INDICATION
     Dates: start: 20101203

REACTIONS (1)
  - MENOMETRORRHAGIA [None]
